FAERS Safety Report 17106467 (Version 3)
Quarter: 2019Q4

REPORT INFORMATION
  Report Type: Report from Study
  Country: ID (occurrence: ID)
  Receive Date: 20191203
  Receipt Date: 20191212
  Transmission Date: 20200122
  Serious: Yes (Death, Hospitalization, Other)
  Sender: FDA-Public Use
  Company Number: ID-SEATTLE GENETICS-2019SGN04365

PATIENT
  Age: 53 Year
  Sex: Male

DRUGS (1)
  1. BRENTUXIMAB VEDOTIN-MPI [Suspect]
     Active Substance: BRENTUXIMAB VEDOTIN
     Indication: HODGKIN^S DISEASE
     Dosage: 100 MG, UNK
     Route: 065
     Dates: start: 20190906

REACTIONS (3)
  - Death [Fatal]
  - Hodgkin^s disease [Unknown]
  - Chest pain [Unknown]

NARRATIVE: CASE EVENT DATE: 20191125
